FAERS Safety Report 23029134 (Version 1)
Quarter: 2023Q4

REPORT INFORMATION
  Report Type: Spontaneous
  Country: US (occurrence: US)
  Receive Date: 20231004
  Receipt Date: 20231004
  Transmission Date: 20240110
  Serious: Yes (Other)
  Sender: FDA-Public Use
  Company Number: US-ELI_LILLY_AND_COMPANY-US202309015216

PATIENT
  Sex: Female

DRUGS (4)
  1. INSULIN LISPRO [Suspect]
     Active Substance: INSULIN LISPRO
     Indication: Type 2 diabetes mellitus
     Dosage: 10 U, QID
     Route: 065
     Dates: start: 2009
  2. INSULIN LISPRO [Suspect]
     Active Substance: INSULIN LISPRO
     Indication: Type 2 diabetes mellitus
     Dosage: 10 U, QID
     Route: 065
     Dates: start: 2009
  3. INSULIN LISPRO [Suspect]
     Active Substance: INSULIN LISPRO
     Dosage: 10 U, QID
     Route: 065
  4. INSULIN LISPRO [Suspect]
     Active Substance: INSULIN LISPRO
     Dosage: 10 U, QID
     Route: 065

REACTIONS (9)
  - Cardiac failure congestive [Unknown]
  - Systemic lupus erythematosus [Unknown]
  - Postoperative wound complication [Recovering/Resolving]
  - Scab [Recovering/Resolving]
  - Balance disorder [Unknown]
  - Cataract [Unknown]
  - Musculoskeletal discomfort [Unknown]
  - Sinus disorder [Unknown]
  - Blood glucose abnormal [Unknown]
